FAERS Safety Report 10734563 (Version 2)
Quarter: 2015Q1

REPORT INFORMATION
  Report Type: Report from Study
  Country: US (occurrence: US)
  Receive Date: 20150123
  Receipt Date: 20150123
  Transmission Date: 20150721
  Serious: No
  Sender: FDA-Public Use
  Company Number: US-AMGEN INC.-2014-2005

PATIENT
  Age: 79 Year
  Sex: Male

DRUGS (2)
  1. KYPROLIS [Suspect]
     Active Substance: CARFILZOMIB
     Indication: PLASMA CELL MYELOMA
     Route: 042
     Dates: start: 20140417, end: 20140505
  2. KYPROLIS [Suspect]
     Active Substance: CARFILZOMIB
     Route: 042
     Dates: start: 20140522, end: 2014

REACTIONS (1)
  - Platelet count decreased [Unknown]

NARRATIVE: CASE EVENT DATE: 20140828
